FAERS Safety Report 4376911-2 (Version None)
Quarter: 2004Q2

REPORT INFORMATION
  Report Type: 
  Country: None (occurrence: None)
  Receive Date: 20040608
  Receipt Date: 20040526
  Transmission Date: 20050107
  Serious: Yes (Life-Threatening, Other)
  Sender: FDA-Public Use
  Company Number: 2004214446JP

PATIENT
  Age: 35 Year
  Sex: Female
  Weight: 45 kg

DRUGS (10)
  1. DOXORUBICIN HYDROCHLORIDE [Suspect]
     Indication: BONE SARCOMA
     Dosage: 45 MG, CYCLIC, IV
     Route: 042
     Dates: start: 20020716, end: 20020717
  2. CYCLOPHOSPHAMIDE (CYCLOPHSPHAMIDE) POWDER, STERILE [Suspect]
     Indication: BONE SARCOMA
     Dosage: 1350 MG, CYCLIC, IV
     Route: 042
     Dates: start: 20020716, end: 20020717
  3. CYCLOPHOSPHAMIDE (CYCLOPHSPHAMIDE) POWDER, STERILE [Suspect]
     Indication: BONE SARCOMA
     Dosage: 1350 MG, CYCLIC, IV
     Route: 042
     Dates: start: 20020827, end: 20020828
  4. VINCRISTINE SULPHATE  (VINCRISITINE SULFATE) SOLUTION, STERILE [Suspect]
     Indication: BONE SARCOMA
     Dosage: 2 MG DAILY, CYCLCE 1, IV;2 MG DAILY, CYCLE 2, IV
     Route: 042
     Dates: start: 20020716, end: 20020717
  5. VINCRISTINE SULPHATE  (VINCRISITINE SULFATE) SOLUTION, STERILE [Suspect]
     Indication: BONE SARCOMA
     Dosage: 2 MG DAILY, CYCLCE 1, IV;2 MG DAILY, CYCLE 2, IV
     Route: 042
     Dates: start: 20020827, end: 20020827
  6. DEXAPOSTAFEN COMPRIMIDOS (DEXAMETHASONE) TABLET [Suspect]
     Indication: PROPHYLAXIS OF NAUSEA AND VOMITING
     Dosage: 6 MG, CYCLIC, IV
     Route: 042
     Dates: start: 20020827, end: 20020828
  7. KYTRIL [Concomitant]
  8. SOLITA-TI INJECTION [Concomitant]
  9. KCL-RETARD [Concomitant]
  10. MEYLON [Concomitant]

REACTIONS (14)
  - ABDOMINAL PAIN UPPER [None]
  - BLOOD PRESSURE DECREASED [None]
  - BONE MARROW DEPRESSION [None]
  - CHEST WALL PAIN [None]
  - DUODENAL ULCER HAEMORRHAGE [None]
  - GASTROINTESTINAL DISORDER [None]
  - HEART RATE INCREASED [None]
  - HODGKIN'S DISEASE RECURRENT [None]
  - IMPAIRED HEALING [None]
  - OEDEMA [None]
  - POST PROCEDURAL COMPLICATION [None]
  - POSTOPERATIVE ADHESION [None]
  - PROTEIN TOTAL DECREASED [None]
  - SHOCK HAEMORRHAGIC [None]
